FAERS Safety Report 7002235-0 (Version None)
Quarter: 2010Q3

REPORT INFORMATION
  Report Type: 
  Country: None (occurrence: None)
  Receive Date: 20100920
  Receipt Date: 20100723
  Transmission Date: 20110219
  Serious: No
  Sender: FDA-Public Use
  Company Number: US-ASTRAZENECA-2009UW17747

PATIENT
  Age: 47 Year
  Sex: Female
  Weight: 124.7 kg

DRUGS (6)
  1. SEROQUEL [Suspect]
     Indication: DEPRESSION
     Route: 048
     Dates: start: 20040101, end: 20090101
  2. SEROQUEL [Suspect]
     Indication: INSOMNIA
     Route: 048
     Dates: start: 20040101, end: 20090101
  3. ABILIFY [Concomitant]
     Dates: start: 20080909
  4. ATIVAN [Concomitant]
     Dates: start: 20080909
  5. LEXAPRO [Concomitant]
     Dates: start: 20080909
  6. KEFLEX [Concomitant]
     Dates: start: 20080909

REACTIONS (2)
  - OBESITY [None]
  - TYPE 2 DIABETES MELLITUS [None]
